FAERS Safety Report 8739162 (Version 2)
Quarter: 2014Q3

REPORT INFORMATION
  Report Type: Spontaneous
  Country: US (occurrence: US)
  Receive Date: 20120823
  Receipt Date: 20140924
  Transmission Date: 20150326
  Serious: Yes (Hospitalization, Other)
  Sender: FDA-Public Use
  Company Number: US-ELI_LILLY_AND_COMPANY-US201208004528

PATIENT
  Sex: Female

DRUGS (4)
  1. CYMBALTA [Suspect]
     Active Substance: DULOXETINE HYDROCHLORIDE
     Indication: OSTEOARTHRITIS
     Dosage: 60 MG, QD
     Route: 065
     Dates: end: 201409
  2. CYMBALTA [Suspect]
     Active Substance: DULOXETINE HYDROCHLORIDE
     Indication: FIBROMYALGIA
     Dosage: UNK, UNKNOWN
     Route: 065
  3. CYMBALTA [Suspect]
     Active Substance: DULOXETINE HYDROCHLORIDE
     Indication: KNEE ARTHROPLASTY
  4. COUMADIN [Concomitant]
     Active Substance: WARFARIN SODIUM
     Indication: PRODUCT USED FOR UNKNOWN INDICATION
     Dosage: UNK, UNKNOWN
     Route: 065

REACTIONS (33)
  - Central nervous system lesion [Unknown]
  - Multiple sclerosis [Unknown]
  - Alopecia [Unknown]
  - Thyroid disorder [Unknown]
  - Polyp [Unknown]
  - Appendicitis [Unknown]
  - Neuropathy peripheral [Unknown]
  - Scoliosis [Unknown]
  - Depression [Unknown]
  - Nausea [Unknown]
  - Intervertebral disc degeneration [Unknown]
  - Chills [Unknown]
  - Crying [Unknown]
  - Feeling abnormal [Unknown]
  - Peripheral swelling [Unknown]
  - Emotional disorder [Unknown]
  - Malaise [Unknown]
  - Diarrhoea [Unknown]
  - Abscess bacterial [Unknown]
  - Appendicitis perforated [Unknown]
  - Thrombosis [Unknown]
  - Infertility female [Unknown]
  - Swelling [Unknown]
  - Hernia [Unknown]
  - Constipation [Unknown]
  - Vomiting [Unknown]
  - Anxiety [Unknown]
  - Drug withdrawal syndrome [Unknown]
  - Suicidal behaviour [Unknown]
  - Pain [Unknown]
  - Psychotic disorder [Unknown]
  - Ovarian cyst [Unknown]
  - Scar [Unknown]

NARRATIVE: CASE EVENT DATE: 2011
